FAERS Safety Report 4407573-3 (Version None)
Quarter: 2004Q3

REPORT INFORMATION
  Report Type: 
  Country: None (occurrence: None)
  Receive Date: 20040721
  Receipt Date: 20040707
  Transmission Date: 20050211
  Serious: No
  Sender: FDA-Public Use
  Company Number: 2004AP03508

PATIENT
  Sex: Male

DRUGS (3)
  1. LOSEC HP7 [Suspect]
     Dates: start: 20040303
  2. AMOXICILLIN [Suspect]
     Dates: start: 20040303
  3. CLARITHROMYCIN [Suspect]
     Dates: start: 20040303

REACTIONS (2)
  - DYSPNOEA [None]
  - RASH GENERALISED [None]
